FAERS Safety Report 6748994-3 (Version None)
Quarter: 2010Q2

REPORT INFORMATION
  Report Type: 
  Country: None (occurrence: None)
  Receive Date: 20100601
  Receipt Date: 20100521
  Transmission Date: 20101027
  Serious: Yes (Other)
  Sender: FDA-Public Use
  Company Number: PHHY2010MX33796

PATIENT
  Age: 13 Year
  Sex: Male

DRUGS (1)
  1. RITALIN [Suspect]
     Dosage: 1 DF IN THE MORNING, 1.5 DF AT AFTERNOON
     Route: 048
     Dates: start: 20071126

REACTIONS (3)
  - ANXIETY [None]
  - FEAR [None]
  - NERVOUSNESS [None]
